FAERS Safety Report 22622335 (Version 2)
Quarter: 2023Q2

REPORT INFORMATION
  Report Type: Report from Study
  Country: US (occurrence: US)
  Receive Date: 20230620
  Receipt Date: 20230630
  Transmission Date: 20230722
  Serious: Yes (Hospitalization)
  Sender: FDA-Public Use
  Company Number: US-JNJFOC-20230635758

PATIENT
  Age: 39 Year
  Sex: Female

DRUGS (3)
  1. SPRAVATO [Suspect]
     Active Substance: ESKETAMINE
     Indication: Depression
     Dosage: ^56 MG, 15 TOTAL DOSES^
     Dates: start: 20230328, end: 20230517
  2. SPRAVATO [Suspect]
     Active Substance: ESKETAMINE
     Dosage: ^84 MG, 2 TOTAL DOSES^
     Dates: start: 20230601, end: 20230606
  3. SPRAVATO [Suspect]
     Active Substance: ESKETAMINE
     Dates: start: 20230614, end: 20230614

REACTIONS (2)
  - Cellulitis [Recovered/Resolved]
  - Arthropod bite [Recovered/Resolved]

NARRATIVE: CASE EVENT DATE: 20230101
